FAERS Safety Report 23714917 (Version 1)
Quarter: 2024Q2

REPORT INFORMATION
  Report Type: Spontaneous
  Country: US (occurrence: US)
  Receive Date: 20240406
  Receipt Date: 20240406
  Transmission Date: 20240715
  Serious: Yes (Death, Other)
  Sender: FDA-Public Use
  Company Number: US-CPL-004123

PATIENT
  Age: 14 Year
  Sex: Male

DRUGS (4)
  1. FLUOXETINE [Interacting]
     Active Substance: FLUOXETINE HYDROCHLORIDE
     Indication: Product used for unknown indication
  2. DEXTROMETHORPHAN [Interacting]
     Active Substance: DEXTROMETHORPHAN
  3. DRONABINOL [Concomitant]
     Active Substance: DRONABINOL
     Indication: Product used for unknown indication
  4. ALCOHOL [Concomitant]
     Active Substance: ALCOHOL
     Indication: Product used for unknown indication

REACTIONS (4)
  - Completed suicide [Fatal]
  - Serotonin syndrome [Unknown]
  - Drug level increased [Unknown]
  - Drug interaction [Unknown]
